FAERS Safety Report 8010544-1 (Version None)
Quarter: 2011Q4

REPORT INFORMATION
  Report Type: 
  Country: None (occurrence: None)
  Receive Date: 20111228
  Receipt Date: 20111216
  Transmission Date: 20120403
  Serious: Yes (Hospitalization, Other)
  Sender: FDA-Public Use
  Company Number: PHHY2011DE109825

PATIENT
  Sex: Male
  Weight: 93 kg

DRUGS (13)
  1. EXFORGE HCT [Suspect]
     Dosage: UNK
  2. BETA BLOCKING AGENTS [Concomitant]
     Dosage: UNK UKN, UNK
     Dates: start: 20110415
  3. PIOGLITAZONE HYDROCHLORIDE/METFORMIN HYDROCHLORIDE [Concomitant]
     Indication: DIABETES MELLITUS
     Dosage: UNK UKN, UNK
     Route: 048
     Dates: start: 20100607, end: 20110525
  4. DICLAC 50 [Concomitant]
     Dosage: 150 MG, DAILY
     Route: 048
     Dates: start: 19500101, end: 20110525
  5. EXFORGE HCT [Suspect]
     Dosage: 1 DF, QD, (160 MG VALS, 05 MG AMLO AND 12.5 MG HYDRO)
     Route: 048
     Dates: start: 20110415
  6. NOVONORM 0.5 [Concomitant]
     Indication: DIABETES MELLITUS
     Dosage: 1.5 MG, DAILY
     Route: 048
     Dates: start: 20100902, end: 20110525
  7. CENTRALLY ACTING SYMPATHOMIMETICS [Concomitant]
     Dosage: UNK UKN, UNK
     Dates: start: 20110415
  8. PLATELET AGGREGATION INHIBITORS [Concomitant]
     Dosage: UNK UKN, UNK
     Dates: start: 20110415
  9. ENALAPRIL MALEATE [Concomitant]
     Indication: HYPERTENSION
     Dosage: 40 MG, DAILY
     Route: 048
     Dates: start: 19500101, end: 20110525
  10. STATINS [Concomitant]
     Dosage: UNK UKN, UNK
     Dates: start: 20110415
  11. ORAL ANTIDIABETICS [Concomitant]
     Indication: DIABETES MELLITUS
     Dosage: UNK UKN, UNK
  12. ALISKIREN [Suspect]
     Indication: HYPERTENSION
     Dosage: 1 DF (300 MG), QD
     Route: 048
     Dates: start: 20101124, end: 20110525
  13. ACE INHIBITORS [Concomitant]
     Dosage: UNK UKN, UNK
     Dates: end: 20110415

REACTIONS (9)
  - HYPERTENSION [None]
  - MYOCARDIAL ISCHAEMIA [None]
  - CARDIAC VALVE DISEASE [None]
  - DIABETIC NEPHROPATHY [None]
  - CREATINE URINE INCREASED [None]
  - LEFT VENTRICULAR DYSFUNCTION [None]
  - AORTIC VALVE STENOSIS [None]
  - GLAUCOMA [None]
  - ALBUMIN URINE PRESENT [None]
